FAERS Safety Report 10238478 (Version 2)
Quarter: 2014Q2

REPORT INFORMATION
  Report Type: Report from Study
  Country: IN (occurrence: IN)
  Receive Date: 20140616
  Receipt Date: 20140616
  Transmission Date: 20141212
  Serious: Yes (Hospitalization, Other)
  Sender: FDA-Public Use
  Company Number: PHHY2014IN066197

PATIENT
  Age: 68 Year
  Sex: Female

DRUGS (3)
  1. ACLASTA [Suspect]
     Indication: OSTEOPOROSIS
     Dosage: 5 MG/100 ML
     Route: 042
     Dates: start: 20140120
  2. GLYCOMET [Concomitant]
     Indication: DIABETES MELLITUS
     Dosage: 1 DF, QD
     Route: 048
  3. LOSAR//LOSARTAN POTASSIUM [Concomitant]
     Indication: BLOOD PRESSURE ABNORMAL
     Dosage: 1 DF, QD
     Route: 048

REACTIONS (2)
  - Arthralgia [Unknown]
  - Fall [Unknown]
